FAERS Safety Report 15838198 (Version 1)
Quarter: 2019Q1

REPORT INFORMATION
  Report Type: Spontaneous
  Country: GB (occurrence: GB)
  Receive Date: 20190117
  Receipt Date: 20190117
  Transmission Date: 20190417
  Serious: Yes (Death, Hospitalization)
  Sender: FDA-Public Use
  Company Number: PHHY2019GB006378

PATIENT
  Age: 55 Year
  Sex: Male

DRUGS (3)
  1. CINNARIZINE [Suspect]
     Active Substance: CINNARIZINE
     Indication: PRODUCT USED FOR UNKNOWN INDICATION
     Dosage: 1.13 G, QMO
     Route: 048
  2. ACETYLSALICYLIC ACID [Suspect]
     Active Substance: ASPIRIN
     Indication: INTENTIONAL OVERDOSE
     Dosage: 3.15 G, UNK
     Route: 048
  3. PARACETAMOL [Suspect]
     Active Substance: ACETAMINOPHEN
     Indication: INTENTIONAL OVERDOSE
     Dosage: 50 G, UNK
     Route: 048

REACTIONS (17)
  - Toxicity to various agents [Fatal]
  - Shock [Fatal]
  - Lactic acidosis [Not Recovered/Not Resolved]
  - Acute kidney injury [Fatal]
  - Confusional state [Not Recovered/Not Resolved]
  - Blood bilirubin increased [Not Recovered/Not Resolved]
  - Depressed level of consciousness [Not Recovered/Not Resolved]
  - Acute respiratory distress syndrome [Fatal]
  - Alanine aminotransferase increased [Fatal]
  - Multiple organ dysfunction syndrome [Fatal]
  - Overdose [Fatal]
  - Prothrombin time abnormal [Not Recovered/Not Resolved]
  - International normalised ratio increased [Not Recovered/Not Resolved]
  - Agitation [Not Recovered/Not Resolved]
  - Cardiogenic shock [Not Recovered/Not Resolved]
  - Hypoglycaemia [Fatal]
  - Blood glucose fluctuation [Not Recovered/Not Resolved]
